FAERS Safety Report 12982251 (Version 3)
Quarter: 2017Q4

REPORT INFORMATION
  Report Type: Spontaneous
  Country: US (occurrence: US)
  Receive Date: 20161129
  Receipt Date: 20171027
  Transmission Date: 20180320
  Serious: Yes (Other)
  Sender: FDA-Public Use
  Company Number: US-PFIZER INC-2016549912

PATIENT
  Age: 63 Year
  Sex: Female
  Weight: 74.39 kg

DRUGS (11)
  1. LYRICA [Suspect]
     Active Substance: PREGABALIN
     Dosage: 10 MG, 2X/DAY
     Route: 048
     Dates: start: 2017
  2. LYRICA [Suspect]
     Active Substance: PREGABALIN
     Dosage: UNK, 3X/DAY
  3. FOLIC ACID. [Concomitant]
     Active Substance: FOLIC ACID
     Indication: WHITE BLOOD CELL COUNT DECREASED
     Dosage: 1 MG, 2X/DAY
  4. LYRICA [Suspect]
     Active Substance: PREGABALIN
     Indication: FIBROMYALGIA
     Dosage: 75 MG, 1X/DAY
     Route: 048
     Dates: start: 2014
  5. TRAZODONE [Concomitant]
     Active Substance: TRAZODONE HYDROCHLORIDE
     Dosage: 200 MG, 1X/DAY (2 TABLETS AT NIGHT)
  6. VALIUM [Concomitant]
     Active Substance: DIAZEPAM
     Indication: SLEEP DISORDER
     Dosage: 10MG, TWO AT NIGHT
  7. VALIUM [Concomitant]
     Active Substance: DIAZEPAM
     Dosage: 10 MG, AS NEEDED (TWICE)
  8. LYRICA [Suspect]
     Active Substance: PREGABALIN
     Dosage: 10 MG, 2X/DAY
     Dates: start: 20161108
  9. WELLBUTRIN [Concomitant]
     Active Substance: BUPROPION HYDROCHLORIDE
     Indication: ANXIETY
     Dosage: 200 MG, 2X/DAY
  10. MONTELUKAST SODIUM. [Concomitant]
     Active Substance: MONTELUKAST SODIUM
     Indication: HYPERSENSITIVITY
     Dosage: 10 MG, 1X/DAY
  11. IBUPROFEN. [Concomitant]
     Active Substance: IBUPROFEN
     Dosage: 800 MG, 2X/DAY(ONE TAB TWICE A DAY)

REACTIONS (7)
  - Ligament rupture [Unknown]
  - Meniscus injury [Unknown]
  - Arthritis [Unknown]
  - Arthropathy [Not Recovered/Not Resolved]
  - Open fracture [Not Recovered/Not Resolved]
  - Weight increased [Not Recovered/Not Resolved]
  - Increased appetite [Unknown]

NARRATIVE: CASE EVENT DATE: 20161108
